FAERS Safety Report 9881544 (Version 2)
Quarter: 2014Q1

REPORT INFORMATION
  Report Type: Spontaneous
  Country: US (occurrence: US)
  Receive Date: 20140207
  Receipt Date: 20140207
  Transmission Date: 20141002
  Serious: No
  Sender: FDA-Public Use
  Company Number: US-MYLANLABS-2013S1028113

PATIENT
  Age: 40 Year
  Sex: Male
  Weight: 102.06 kg

DRUGS (2)
  1. MORPHINE SULFATE EXTENDED-RELEASE TABLETS [Suspect]
     Indication: BACK PAIN
     Route: 048
     Dates: start: 20131212, end: 201312
  2. MORPHINE SULFATE EXTENDED-RELEASE TABLETS [Suspect]
     Indication: PAIN
     Route: 048
     Dates: start: 20131212, end: 201312

REACTIONS (3)
  - Dysgeusia [Recovered/Resolved]
  - Tongue disorder [Recovered/Resolved]
  - Feeling abnormal [Recovered/Resolved]
